FAERS Safety Report 19439764 (Version 4)
Quarter: 2022Q1

REPORT INFORMATION
  Report Type: Report from Study
  Country: GB (occurrence: GB)
  Receive Date: 20210620
  Receipt Date: 20220113
  Transmission Date: 20220423
  Serious: Yes (Other)
  Sender: FDA-Public Use
  Company Number: GB-UCBSA-2021023836

PATIENT
  Age: 43 Year
  Sex: Female

DRUGS (3)
  1. CERTOLIZUMAB PEGOL [Suspect]
     Active Substance: CERTOLIZUMAB PEGOL
     Indication: Rheumatoid arthritis
     Dosage: 400 MILLIGRAM, EV 2 WEEKS(QOW)
     Route: 058
     Dates: start: 20210503, end: 2021
  2. CERTOLIZUMAB PEGOL [Suspect]
     Active Substance: CERTOLIZUMAB PEGOL
     Dosage: 200 MILLIGRAM, EV 2 WEEKS(QOW)
     Route: 058
     Dates: start: 2021, end: 2021
  3. COCODAMOL [Concomitant]
     Active Substance: ACETAMINOPHEN\CODEINE PHOSPHATE
     Indication: Pain
     Dosage: UNK

REACTIONS (8)
  - Asthma [Unknown]
  - Headache [Unknown]
  - Diarrhoea [Recovered/Resolved]
  - Dyspepsia [Unknown]
  - Arthralgia [Not Recovered/Not Resolved]
  - Therapy interrupted [Unknown]
  - Product prescribing issue [Unknown]
  - Product storage error [Unknown]

NARRATIVE: CASE EVENT DATE: 20211001
